FAERS Safety Report 22938959 (Version 8)
Quarter: 2024Q2

REPORT INFORMATION
  Report Type: Spontaneous
  Country: DE (occurrence: DE)
  Receive Date: 20230913
  Receipt Date: 20240426
  Transmission Date: 20240715
  Serious: Yes (Hospitalization, Other)
  Sender: FDA-Public Use
  Company Number: DE-TAKEDA-2022TUS103142

PATIENT
  Age: 20 Year
  Sex: Male

DRUGS (6)
  1. ENTYVIO [Suspect]
     Active Substance: VEDOLIZUMAB
     Indication: Crohn^s disease
     Dosage: UNK
     Route: 058
  2. STELARA [Suspect]
     Active Substance: USTEKINUMAB
     Indication: Product used for unknown indication
     Dosage: UNK
     Route: 065
  3. IRON [Suspect]
     Active Substance: IRON
     Indication: Product used for unknown indication
     Dosage: UNK
     Route: 065
  4. AMITRIPTYLINE [Suspect]
     Active Substance: AMITRIPTYLINE
     Indication: Product used for unknown indication
     Dosage: 10 MILLIGRAM
     Route: 065
  5. RINVOQ [Suspect]
     Active Substance: UPADACITINIB
     Indication: Crohn^s disease
     Dosage: 15 MILLIGRAM
     Route: 065
  6. RINVOQ [Suspect]
     Active Substance: UPADACITINIB
     Dosage: 30 MILLIGRAM
     Route: 065

REACTIONS (12)
  - Crohn^s disease [Unknown]
  - Diarrhoea [Unknown]
  - Alopecia [Unknown]
  - Dandruff [Unknown]
  - Drug ineffective [Unknown]
  - Stress [Unknown]
  - Weight increased [Unknown]
  - Dry skin [Unknown]
  - Dizziness [Unknown]
  - Acne [Unknown]
  - Headache [Unknown]
  - Nausea [Unknown]
